FAERS Safety Report 18922435 (Version 1)
Quarter: 2021Q1

REPORT INFORMATION
  Report Type: Spontaneous
  Country: US (occurrence: US)
  Receive Date: 20210222
  Receipt Date: 20210222
  Transmission Date: 20210420
  Serious: Yes (Other)
  Sender: FDA-Public Use
  Company Number: US-SA-2021SA056638

PATIENT
  Sex: Female

DRUGS (1)
  1. AUBAGIO [Suspect]
     Active Substance: TERIFLUNOMIDE
     Dosage: 14MG, QD
     Route: 058
     Dates: start: 20200221

REACTIONS (2)
  - Multiple sclerosis relapse [Unknown]
  - Multiple sclerosis [Unknown]

NARRATIVE: CASE EVENT DATE: 202101
